FAERS Safety Report 8509025-8 (Version None)
Quarter: 2012Q3

REPORT INFORMATION
  Report Type: 
  Country: None (occurrence: None)
  Receive Date: 20120713
  Receipt Date: 20120709
  Transmission Date: 20120928
  Serious: Yes (Hospitalization)
  Sender: FDA-Public Use
  Company Number: US-SANOFI-AVENTIS-2012SA048975

PATIENT
  Sex: Female

DRUGS (1)
  1. ALLEGRA D 24 HOUR [Suspect]

REACTIONS (1)
  - NONSPECIFIC REACTION [None]
